FAERS Safety Report 9611517 (Version 1)
Quarter: 2013Q4

REPORT INFORMATION
  Report Type: Spontaneous
  Country: US (occurrence: US)
  Receive Date: 20131010
  Receipt Date: 20131010
  Transmission Date: 20140711
  Serious: Yes (Hospitalization)
  Sender: FDA-Public Use
  Company Number: US-BRISTOL-MYERS SQUIBB COMPANY-19467604

PATIENT
  Age: 68 Year
  Sex: Male

DRUGS (3)
  1. KENALOG-40 INJ [Suspect]
     Indication: OSTEOARTHRITIS
  2. LIDOCAINE [Suspect]
     Indication: OSTEOARTHRITIS
     Dosage: 1DF=2%-UNITS NOS
  3. BUPIVACAINE [Suspect]
     Indication: OSTEOARTHRITIS
     Dosage: 1DF=0.25%-UNITS NOS

REACTIONS (2)
  - Arthralgia [Unknown]
  - Fungal infection [Unknown]
